FAERS Safety Report 10456143 (Version 1)
Quarter: 2014Q3

REPORT INFORMATION
  Report Type: Spontaneous
  Country: US (occurrence: US)
  Receive Date: 20140916
  Receipt Date: 20140916
  Transmission Date: 20150326
  Serious: No
  Sender: FDA-Public Use
  Company Number: US-009507513-1409USA005655

PATIENT
  Age: 6 Year
  Sex: Female
  Weight: 23.58 kg

DRUGS (1)
  1. CLARITIN REDITABS [Suspect]
     Active Substance: LORATADINE
     Indication: PRODUCT USED FOR UNKNOWN INDICATION
     Dosage: 10 MG, BID
     Route: 048
     Dates: start: 20140908, end: 20140908

REACTIONS (1)
  - Accidental overdose [Recovering/Resolving]

NARRATIVE: CASE EVENT DATE: 20140908
